FAERS Safety Report 7946051-1 (Version None)
Quarter: 2011Q4

REPORT INFORMATION
  Report Type: 
  Country: None (occurrence: None)
  Receive Date: 20111129
  Receipt Date: 20111121
  Transmission Date: 20120403
  Serious: Yes (Other)
  Sender: FDA-Public Use
  Company Number: US-GLAXOSMITHKLINE-A0954123A

PATIENT
  Age: 50 Year
  Sex: Male

DRUGS (13)
  1. ZONEGRAN [Concomitant]
  2. VERAMYST [Suspect]
     Indication: SINUS DISORDER
     Dosage: 2PUFF TWICE PER DAY
     Route: 045
     Dates: start: 20111101
  3. CROMOLYN SODIUM 4% OPHTHALMIC SOLUTION [Concomitant]
  4. LAMICTAL [Suspect]
     Indication: CONVULSION
     Route: 048
  5. MOBIC [Concomitant]
  6. PROTONIX [Concomitant]
  7. VYTORIN [Concomitant]
  8. ACCURETIC [Concomitant]
  9. KLONOPIN [Concomitant]
  10. SINGULAIR [Concomitant]
  11. KEPPRA [Concomitant]
  12. NEURONTIN [Concomitant]
  13. POTASSIUM CL [Concomitant]

REACTIONS (6)
  - MEMORY IMPAIRMENT [None]
  - SYNCOPE [None]
  - CARDIAC DISORDER [None]
  - HAEMOPTYSIS [None]
  - ADVERSE EVENT [None]
  - OVERDOSE [None]
